FAERS Safety Report 10394147 (Version 2)
Quarter: 2016Q3

REPORT INFORMATION
  Report Type: Report from Study
  Country: US (occurrence: US)
  Receive Date: 20140818
  Receipt Date: 20160808
  Transmission Date: 20161109
  Serious: Yes (Hospitalization)
  Sender: FDA-Public Use
  Company Number: AEGR000660

PATIENT
  Age: 54 Year
  Sex: Male
  Weight: 87.75 kg

DRUGS (3)
  1. JUXTAPID [Suspect]
     Active Substance: LOMITAPIDE MESYLATE
     Indication: TYPE IIA HYPERLIPIDAEMIA
     Dosage: UNK
     Route: 048
     Dates: start: 20130502
  2. JUXTAPID [Suspect]
     Active Substance: LOMITAPIDE MESYLATE
     Dosage: 20 MG, UNK
     Route: 048
  3. JUXTAPID [Suspect]
     Active Substance: LOMITAPIDE MESYLATE
     Dosage: 25 MG, QD
     Route: 048

REACTIONS (3)
  - Vertigo [Recovered/Resolved]
  - Hepatic steatosis [Unknown]
  - Weight decreased [Recovered/Resolved]

NARRATIVE: CASE EVENT DATE: 201305
